FAERS Safety Report 7503451-1 (Version None)
Quarter: 2011Q2

REPORT INFORMATION
  Report Type: 
  Country: None (occurrence: None)
  Receive Date: 20110525
  Receipt Date: 20110330
  Transmission Date: 20111010
  Serious: Yes (Death, Hospitalization, Other)
  Sender: FDA-Public Use
  Company Number: JP-BAYER-2011-027588

PATIENT
  Age: 63 Year
  Sex: Male
  Weight: 82 kg

DRUGS (4)
  1. LASIX [Concomitant]
     Dosage: DAILY DOSE 40 MG
     Route: 041
     Dates: start: 20110323, end: 20110324
  2. OMEPRAZOLE [Concomitant]
     Indication: GASTROINTESTINAL HAEMORRHAGE
     Dosage: DAILY DOSE 40 MG
     Route: 041
     Dates: start: 20110322, end: 20110324
  3. NEXAVAR [Suspect]
     Indication: RENAL CELL CARCINOMA
     Dosage: 400 MG, BID
     Route: 048
     Dates: start: 20101020, end: 20110324
  4. HEPARIN SODIUM [Concomitant]
     Indication: ANTICOAGULANT THERAPY
     Dosage: DAILY DOSE 1.4 MIU
     Route: 041
     Dates: start: 20110322, end: 20110324

REACTIONS (10)
  - PAIN IN EXTREMITY [None]
  - RENAL INFARCT [None]
  - INTESTINAL ISCHAEMIA [None]
  - SHOCK [None]
  - CARDIO-RESPIRATORY ARREST [None]
  - ARTERIAL THROMBOSIS LIMB [None]
  - PERIPHERAL ARTERIAL OCCLUSIVE DISEASE [None]
  - MULTI-ORGAN FAILURE [None]
  - MESENTERIC OCCLUSION [None]
  - ABDOMINAL PAIN [None]
